FAERS Safety Report 6005056-0 (Version None)
Quarter: 2008Q4

REPORT INFORMATION
  Report Type: 
  Country: None (occurrence: None)
  Receive Date: 20081216
  Receipt Date: 20081208
  Transmission Date: 20090506
  Serious: Yes (Other)
  Sender: FDA-Public Use
  Company Number: PHHY2008MX31448

PATIENT
  Sex: Female

DRUGS (2)
  1. TOFRANIL [Suspect]
     Indication: ENURESIS
     Dosage: 10 MG, QD
     Dates: start: 20060101, end: 20060101
  2. NOOTROPIL [Concomitant]
     Dosage: 1 ML PER DAY
     Dates: start: 20060101

REACTIONS (3)
  - ANXIETY [None]
  - IRRITABILITY [None]
  - MYOCLONUS [None]
